FAERS Safety Report 22167291 (Version 3)
Quarter: 2023Q2

REPORT INFORMATION
  Report Type: Spontaneous
  Country: US (occurrence: US)
  Receive Date: 20230403
  Receipt Date: 20230419
  Transmission Date: 20230722
  Serious: No
  Sender: FDA-Public Use
  Company Number: US-PFIZER INC-202300140251

PATIENT
  Age: 6 Year

DRUGS (3)
  1. XELJANZ [Suspect]
     Active Substance: TOFACITINIB CITRATE
     Indication: Juvenile idiopathic arthritis
     Dosage: 5 MG, 2X/DAY
  2. METHOTREXATE SODIUM [Suspect]
     Active Substance: METHOTREXATE SODIUM
     Indication: Juvenile idiopathic arthritis
     Dosage: 12.5 MG, WEEKLY
     Route: 058
  3. TOCILIZUMAB [Suspect]
     Active Substance: TOCILIZUMAB
     Dosage: 10 MG/KG, Q28 DAYS
     Route: 042

REACTIONS (1)
  - Hypertransaminasaemia [Unknown]
